FAERS Safety Report 5039277-0 (Version None)
Quarter: 2006Q2

REPORT INFORMATION
  Report Type: 
  Country: None (occurrence: None)
  Receive Date: 20060622
  Receipt Date: 20060614
  Transmission Date: 20061013
  Serious: Yes (Other)
  Sender: FDA-Public Use
  Company Number: 2006075765

PATIENT
  Age: 36 Year
  Sex: Male
  Weight: 90.7194 kg

DRUGS (4)
  1. XANAX [Suspect]
     Indication: ILL-DEFINED DISORDER
     Dates: end: 20050901
  2. DILANTIN [Suspect]
     Indication: CONVULSION
     Dates: start: 20050901
  3. WELLBUTRIN [Suspect]
     Indication: ILL-DEFINED DISORDER
     Dates: end: 20050901
  4. TOPROL-XL [Concomitant]

REACTIONS (3)
  - CONVULSION [None]
  - SPERM COUNT DECREASED [None]
  - SPERMATOZOA PROGRESSIVE MOTILITY DECREASED [None]
